FAERS Safety Report 7203146-8 (Version None)
Quarter: 2010Q4

REPORT INFORMATION
  Report Type: 
  Country: None (occurrence: None)
  Receive Date: 20101229
  Receipt Date: 20101217
  Transmission Date: 20110411
  Serious: Yes (Other)
  Sender: FDA-Public Use
  Company Number: PT-BAYER-2010-005948

PATIENT
  Age: 73 Year
  Sex: Female

DRUGS (1)
  1. MOXIFLOXACIN HCL [Suspect]
     Dosage: DAILY DOSE 400 MG

REACTIONS (4)
  - COLD SWEAT [None]
  - HALLUCINATION [None]
  - SCINTILLATING SCOTOMA [None]
  - VISION BLURRED [None]
